FAERS Safety Report 5018970-X (Version None)
Quarter: 2006Q2

REPORT INFORMATION
  Report Type: 
  Country: None (occurrence: None)
  Receive Date: 20060531
  Receipt Date: 20060116
  Transmission Date: 20061013
  Serious: Yes (Other)
  Sender: FDA-Public Use
  Company Number: CHNY2006US00573

PATIENT
  Age: 35 Year
  Sex: Female

DRUGS (1)
  1. BUCKLEY'S MIXTURE (USA) (NCH) (DEXTROMETHORPHAN HYDROBROMIDE) SYRUP [Suspect]
     Indication: COUGH
     Dosage: ORAL
     Route: 048
     Dates: start: 20060112, end: 20060114

REACTIONS (2)
  - DRUG INEFFECTIVE [None]
  - URTICARIA GENERALISED [None]
